FAERS Safety Report 9695918 (Version 3)
Quarter: 2014Q1

REPORT INFORMATION
  Report Type: Spontaneous
  Country: JP (occurrence: JP)
  Receive Date: 20131119
  Receipt Date: 20140314
  Transmission Date: 20141002
  Serious: Yes (Other)
  Sender: FDA-Public Use
  Company Number: JP-B.I. PHARMACEUTICALS,INC./RIDGEFIELD-2013-BI-37435NB

PATIENT
  Age: 63 Year
  Sex: Female
  Weight: 79.2 kg

DRUGS (3)
  1. MICARDIS [Suspect]
     Indication: HYPERTENSION
     Dosage: 40 MG
     Route: 048
     Dates: start: 20100422, end: 20131108
  2. MUCODYNE / CARBOCISTEINE [Concomitant]
     Dosage: 1500 MG
     Route: 065
     Dates: start: 20121011, end: 20121108
  3. SHAKUYAKUKANZOTO [Concomitant]
     Dosage: 2.5 G
     Route: 048
     Dates: start: 20120719, end: 20130817

REACTIONS (1)
  - Interstitial lung disease [Not Recovered/Not Resolved]
